FAERS Safety Report 9053815 (Version 1)
Quarter: 2013Q1

REPORT INFORMATION
  Report Type: Spontaneous
  Country: US (occurrence: US)
  Receive Date: 20130207
  Receipt Date: 20130207
  Transmission Date: 20140127
  Serious: Yes (Death)
  Sender: FDA-Public Use
  Company Number: US-GLAXOSMITHKLINE-A1011131A

PATIENT
  Age: 74 Year
  Sex: Female

DRUGS (2)
  1. TYKERB [Suspect]
     Indication: BREAST NEOPLASM
     Dosage: 1250MG PER DAY
     Route: 048
     Dates: start: 20100820, end: 20121116
  2. NONE [Concomitant]

REACTIONS (1)
  - Breast cancer [Fatal]
